FAERS Safety Report 9228562 (Version 2)
Quarter: 2013Q2

REPORT INFORMATION
  Report Type: Spontaneous
  Country: US (occurrence: US)
  Receive Date: 20130412
  Receipt Date: 20130520
  Transmission Date: 20140414
  Serious: Yes (Life-Threatening)
  Sender: FDA-Public Use
  Company Number: US-ROCHE-1214017

PATIENT
  Age: 31 Day
  Sex: Male
  Weight: 4.2 kg

DRUGS (3)
  1. ALTEPLASE [Suspect]
     Indication: THROMBOSIS
     Route: 065
  2. HEPARIN [Concomitant]
  3. NITROGLYCERIN [Concomitant]

REACTIONS (3)
  - Coronary artery embolism [Unknown]
  - Myocardial ischaemia [Unknown]
  - Cardio-respiratory arrest [Recovered/Resolved]
